FAERS Safety Report 24702083 (Version 1)
Quarter: 2024Q4

REPORT INFORMATION
  Report Type: Other
  Country: CN (occurrence: CN)
  Receive Date: 20241205
  Receipt Date: 20241205
  Transmission Date: 20250115
  Serious: Yes (Other)
  Sender: PARATEK PHARMACEUTICALS
  Company Number: CN-PARATEK PHARMACEUTICALS, INC.-2024PTK01097

PATIENT
  Age: 28 Year
  Sex: Female
  Weight: 73.3 kg

DRUGS (1)
  1. NUZYRA [Suspect]
     Active Substance: OMADACYCLINE
     Indication: Mycoplasma infection
     Dosage: 0.1 G, 1X/DAY
     Route: 041
     Dates: start: 20240930, end: 20241001

REACTIONS (3)
  - Hypersensitivity [Recovering/Resolving]
  - Rash [Recovering/Resolving]
  - Pruritus [Recovering/Resolving]

NARRATIVE: CASE EVENT DATE: 20241001
